FAERS Safety Report 15136595 (Version 1)
Quarter: 2018Q3

REPORT INFORMATION
  Report Type: Report from Study
  Country: BR (occurrence: BR)
  Receive Date: 20180712
  Receipt Date: 20180712
  Transmission Date: 20181010
  Serious: Yes (Other)
  Sender: FDA-Public Use
  Company Number: BR-BAYER-2018-126966

PATIENT
  Age: 77 Year
  Sex: Female

DRUGS (5)
  1. TIMOLOL. [Concomitant]
     Active Substance: TIMOLOL
     Indication: GLAUCOMA
  2. INDAPAMIDE. [Concomitant]
     Active Substance: INDAPAMIDE
     Indication: HYPERTENSION
  3. NEXAVAR [Suspect]
     Active Substance: SORAFENIB
     Indication: HEPATOCELLULAR CARCINOMA
     Dosage: 2 DF, BID
     Route: 048
     Dates: start: 20180620
  4. SIMVASTATIN. [Concomitant]
     Active Substance: SIMVASTATIN
  5. TRAVATAN [Concomitant]
     Active Substance: TRAVOPROST
     Indication: GLAUCOMA

REACTIONS (6)
  - Pruritus [Recovering/Resolving]
  - Mass [Recovering/Resolving]
  - Feeling hot [Recovering/Resolving]
  - Feeling abnormal [Recovering/Resolving]
  - Skin hypertrophy [Recovering/Resolving]
  - Miliaria [Recovering/Resolving]

NARRATIVE: CASE EVENT DATE: 20180623
